FAERS Safety Report 5749887-0 (Version None)
Quarter: 2008Q2

REPORT INFORMATION
  Report Type: 
  Country: None (occurrence: None)
  Receive Date: 20080522
  Receipt Date: 20080522
  Transmission Date: 20081010
  Serious: No
  Sender: FDA-Public Use
  Company Number: None

PATIENT
  Age: 56 Year

DRUGS (1)
  1. DILANTIN [Suspect]

REACTIONS (2)
  - BLOOD POTASSIUM INCREASED [None]
  - RENAL DISORDER [None]
